FAERS Safety Report 7092008-5 (Version None)
Quarter: 2010Q4

REPORT INFORMATION
  Report Type: 
  Country: None (occurrence: None)
  Receive Date: 20101109
  Receipt Date: 20101102
  Transmission Date: 20110411
  Serious: Yes (Life-Threatening)
  Sender: FDA-Public Use
  Company Number: NL-JNJFOC-20100805784

PATIENT
  Sex: Male

DRUGS (9)
  1. TRISPORAL [Suspect]
     Indication: ONYCHOMYCOSIS
     Route: 065
  2. DIURETICS [Suspect]
     Indication: ILL-DEFINED DISORDER
     Route: 065
  3. BISOPROLOL [Concomitant]
     Indication: ILL-DEFINED DISORDER
     Route: 065
  4. LEVEMIR [Concomitant]
     Indication: ILL-DEFINED DISORDER
     Route: 065
  5. ACENOCOUMAROL [Concomitant]
     Indication: ILL-DEFINED DISORDER
     Route: 065
  6. NOVORAPID [Concomitant]
     Indication: ILL-DEFINED DISORDER
     Route: 065
  7. MICARDIS HCT [Concomitant]
     Indication: ILL-DEFINED DISORDER
     Route: 065
  8. TAMSULOSIN [Concomitant]
     Indication: ILL-DEFINED DISORDER
     Route: 065
  9. SPIRIVA [Concomitant]
     Indication: ILL-DEFINED DISORDER
     Route: 065

REACTIONS (5)
  - BRAIN NATRIURETIC PEPTIDE INCREASED [None]
  - CARDIAC FAILURE [None]
  - DYSPNOEA [None]
  - OEDEMA PERIPHERAL [None]
  - WEIGHT INCREASED [None]
